FAERS Safety Report 5130884-3 (Version None)
Quarter: 2006Q4

REPORT INFORMATION
  Report Type: 
  Country: None (occurrence: None)
  Receive Date: 20061013
  Receipt Date: 20060929
  Transmission Date: 20070319
  Serious: Yes (Death, Other)
  Sender: FDA-Public Use
  Company Number: 2006BI014009

PATIENT
  Age: 64 Year
  Sex: Female

DRUGS (1)
  1. AVONEX [Suspect]
     Indication: MULTIPLE SCLEROSIS
     Dosage: 30 UG; QW;IM
     Route: 030
     Dates: start: 19991201, end: 20050101

REACTIONS (6)
  - BLADDER CANCER [None]
  - DIALYSIS [None]
  - GASTRIC CANCER [None]
  - METASTASIS [None]
  - RENAL CELL CARCINOMA STAGE UNSPECIFIED [None]
  - RENAL FAILURE [None]
